FAERS Safety Report 10720876 (Version 2)
Quarter: 2015Q2

REPORT INFORMATION
  Report Type: Spontaneous
  Country: US (occurrence: US)
  Receive Date: 20150119
  Receipt Date: 20150505
  Transmission Date: 20150821
  Serious: No
  Sender: FDA-Public Use
  Company Number: US-PFIZER INC-2015016741

PATIENT
  Age: 64 Year
  Sex: Female
  Weight: 86 kg

DRUGS (1)
  1. FUROSEMIDE. [Suspect]
     Active Substance: FUROSEMIDE
     Indication: OEDEMA PERIPHERAL
     Dosage: UNK

REACTIONS (2)
  - Drug hypersensitivity [Unknown]
  - Oedema peripheral [Unknown]
